FAERS Safety Report 4623151-5 (Version None)
Quarter: 2005Q1

REPORT INFORMATION
  Report Type: 
  Country: None (occurrence: None)
  Receive Date: 20050330
  Receipt Date: 20050325
  Transmission Date: 20050727
  Serious: Yes (Hospitalization)
  Sender: FDA-Public Use
  Company Number: US-ABBOTT-05P-163-0295158-00

PATIENT
  Sex: Female
  Weight: 51.756 kg

DRUGS (4)
  1. HUMIRA [Suspect]
     Indication: RHEUMATOID ARTHRITIS
     Route: 058
     Dates: start: 20030101
  2. HYDROXYCHLOROQUINE PHOSPHATE [Concomitant]
     Indication: RHEUMATOID ARTHRITIS
     Route: 048
  3. VALSARTAN [Concomitant]
     Indication: BLOOD PRESSURE
     Route: 048
  4. EPOETIN ALFA [Concomitant]
     Indication: NEOPLASM MALIGNANT
     Dates: start: 19960101

REACTIONS (3)
  - ARTHRALGIA [None]
  - HERPES ZOSTER [None]
  - THROMBOSIS [None]
